FAERS Safety Report 6816960-5 (Version None)
Quarter: 2010Q3

REPORT INFORMATION
  Report Type: 
  Country: None (occurrence: None)
  Receive Date: 20100706
  Receipt Date: 20100622
  Transmission Date: 20110219
  Serious: Yes (Other)
  Sender: FDA-Public Use
  Company Number: PHHY2010GB23275

PATIENT
  Sex: Female

DRUGS (5)
  1. CLOZARIL [Suspect]
     Indication: SCHIZOPHRENIA
     Dosage: 350MG/DAY
     Route: 048
     Dates: start: 20061023
  2. OMEPRAZOLE [Concomitant]
     Dosage: 10MG MANE
     Route: 048
  3. BECLOMETHASONE DIPROPIONATE [Concomitant]
     Dosage: 100 UG, BID
  4. HYOSCINE HBR HYT [Concomitant]
     Dosage: 300 UG, BID
  5. ACETAMINOPHEN [Concomitant]
     Dosage: 1G/PRN

REACTIONS (2)
  - ABORTION [None]
  - DRUG EXPOSURE DURING PREGNANCY [None]
